FAERS Safety Report 7316472-9 (Version None)
Quarter: 2011Q1

REPORT INFORMATION
  Report Type: 
  Country: None (occurrence: None)
  Receive Date: 20110225
  Receipt Date: 20110216
  Transmission Date: 20110831
  Serious: Yes (Other)
  Sender: FDA-Public Use
  Company Number: US-BAYER-201036179NA

PATIENT
  Sex: Male
  Weight: 80.272 kg

DRUGS (3)
  1. ULTRAVIST 300 [Suspect]
     Indication: COMPUTERISED TOMOGRAM ABDOMEN
     Route: 042
     Dates: start: 20100907, end: 20100907
  2. ASPIRIN [Concomitant]
  3. ULTRAVIST 300 [Suspect]
     Indication: RENAL CYST

REACTIONS (5)
  - SNEEZING [None]
  - HYPOAESTHESIA [None]
  - THROAT TIGHTNESS [None]
  - PARAESTHESIA [None]
  - MUSCLE TIGHTNESS [None]
